FAERS Safety Report 4283104-6 (Version None)
Quarter: 2004Q1

REPORT INFORMATION
  Report Type: 
  Country: None (occurrence: None)
  Receive Date: 20040129
  Receipt Date: 20040113
  Transmission Date: 20041129
  Serious: Yes (Hospitalization)
  Sender: FDA-Public Use
  Company Number: 190296

PATIENT
  Sex: Female
  Weight: 72.5755 kg

DRUGS (5)
  1. AVONEX [Suspect]
     Indication: MULTIPLE SCLEROSIS
     Dosage: 30 MCG QW IM
     Route: 030
     Dates: start: 19990101, end: 20031001
  2. AVONEX [Suspect]
     Indication: MULTIPLE SCLEROSIS
     Dosage: 30 MG QW IM
     Route: 030
     Dates: start: 20031001
  3. BACLOFEN [Concomitant]
  4. ZANAFLEX [Concomitant]
  5. ENALAPRIL MALEATE [Concomitant]

REACTIONS (7)
  - BRONCHITIS [None]
  - DEPRESSION [None]
  - HYPERSENSITIVITY [None]
  - ORAL FUNGAL INFECTION [None]
  - PNEUMONIA [None]
  - SINUSITIS [None]
  - VISUAL FIELD DEFECT [None]
